FAERS Safety Report 25757597 (Version 1)
Quarter: 2025Q3

REPORT INFORMATION
  Report Type: Spontaneous
  Country: ZA (occurrence: ZA)
  Receive Date: 20250903
  Receipt Date: 20250903
  Transmission Date: 20251021
  Serious: Yes (Other)
  Sender: MERCK SHARP & DOHME LLC
  Company Number: ZA-009507513-2324619

PATIENT
  Sex: Female

DRUGS (1)
  1. KEYTRUDA [Suspect]
     Active Substance: PEMBROLIZUMAB
     Indication: Product used for unknown indication

REACTIONS (17)
  - Rheumatoid arthritis [Unknown]
  - Asthenia [Unknown]
  - Cough [Unknown]
  - Constipation [Unknown]
  - Nausea [Unknown]
  - Eye swelling [Unknown]
  - Eye irritation [Unknown]
  - Impaired driving ability [Unknown]
  - Mouth ulceration [Unknown]
  - Oral herpes [Unknown]
  - Impaired healing [Unknown]
  - Vaginal discharge [Unknown]
  - Bladder irritation [Unknown]
  - Urinary incontinence [Unknown]
  - Impaired work ability [Unknown]
  - Intertrigo [Unknown]
  - Somnolence [Unknown]
